FAERS Safety Report 8225330-7 (Version None)
Quarter: 2012Q1

REPORT INFORMATION
  Report Type: 
  Country: None (occurrence: None)
  Receive Date: 20120321
  Receipt Date: 20120315
  Transmission Date: 20120608
  Serious: Yes (Hospitalization, Other)
  Sender: FDA-Public Use
  Company Number: MX-GLAXOSMITHKLINE-B0700483B

PATIENT
  Sex: Female
  Weight: 57 kg

DRUGS (2)
  1. RETIGABINE [Suspect]
     Indication: PARTIAL SEIZURES
     Dosage: 1050MG THREE TIMES PER DAY
     Route: 048
     Dates: start: 20070320
  2. CARBAMAZEPINE [Concomitant]
     Dosage: 500MG PER DAY
     Dates: start: 20101110

REACTIONS (1)
  - SOMATISATION DISORDER [None]
